FAERS Safety Report 24136652 (Version 1)
Quarter: 2024Q3

REPORT INFORMATION
  Report Type: Spontaneous
  Country: US (occurrence: US)
  Receive Date: 20240725
  Receipt Date: 20240725
  Transmission Date: 20241017
  Serious: Yes (Other)
  Sender: AMERICAN REGENT
  Company Number: US-AMERICAN REGENT INC-2024002822

PATIENT

DRUGS (1)
  1. PAMIDRONATE DISODIUM [Suspect]
     Active Substance: PAMIDRONATE DISODIUM
     Indication: Bone density decreased
     Dosage: 1 MG/KG BODY WEIGHT PER DAY FOR THREE CONSECUTIVE DAYS REPEATED AT THREE-MONTH INTERVALS
     Route: 042

REACTIONS (4)
  - Bone deformity [Unknown]
  - Bone density increased [Unknown]
  - Product use in unapproved indication [Unknown]
  - Product use issue [Unknown]
